FAERS Safety Report 22587677 (Version 4)
Quarter: 2024Q4

REPORT INFORMATION
  Report Type: Spontaneous
  Country: PT (occurrence: PT)
  Receive Date: 20230612
  Receipt Date: 20241026
  Transmission Date: 20250115
  Serious: Yes (Hospitalization, Other)
  Sender: AUROBINDO
  Company Number: PT-AUROBINDO-AUR-APL-2023-041298

PATIENT
  Age: 68 Year
  Sex: Male

DRUGS (2)
  1. BENDAMUSTINE HYDROCHLORIDE [Suspect]
     Active Substance: BENDAMUSTINE HYDROCHLORIDE
     Indication: Non-Hodgkin^s lymphoma
     Dosage: UNK
     Route: 065
  2. RITUXIMAB [Suspect]
     Active Substance: RITUXIMAB
     Indication: Non-Hodgkin^s lymphoma
     Dosage: UNK
     Route: 065

REACTIONS (3)
  - COVID-19 [Recovered/Resolved]
  - Humoral immune defect [Recovered/Resolved]
  - Infection in an immunocompromised host [Recovered/Resolved]
